FAERS Safety Report 21722779 (Version 18)
Quarter: 2024Q2

REPORT INFORMATION
  Report Type: Report from Study
  Country: AU (occurrence: AU)
  Receive Date: 20221213
  Receipt Date: 20240617
  Transmission Date: 20240716
  Serious: Yes (Hospitalization, Other)
  Sender: FDA-Public Use
  Company Number: AU-TAKEDA-2022TUS074183

PATIENT
  Age: 69 Year
  Sex: Female
  Weight: 53.5 kg

DRUGS (42)
  1. TEDUGLUTIDE [Suspect]
     Active Substance: TEDUGLUTIDE
     Indication: Short-bowel syndrome
     Dosage: 0.28 MILLILITER, QD
     Route: 058
     Dates: start: 20220816
  2. TEDUGLUTIDE [Suspect]
     Active Substance: TEDUGLUTIDE
     Indication: Short-bowel syndrome
     Dosage: 0.28 MILLILITER, QD
     Route: 058
     Dates: start: 20220816
  3. TEDUGLUTIDE [Suspect]
     Active Substance: TEDUGLUTIDE
     Indication: Short-bowel syndrome
     Dosage: 0.28 MILLILITER, QD
     Route: 058
     Dates: start: 20220816
  4. TEDUGLUTIDE [Suspect]
     Active Substance: TEDUGLUTIDE
     Indication: Short-bowel syndrome
     Dosage: 0.28 MILLILITER, QD
     Route: 058
     Dates: start: 20220816
  5. TEDUGLUTIDE [Suspect]
     Active Substance: TEDUGLUTIDE
     Dosage: 0.28 MILLILITER, QD
     Route: 058
     Dates: start: 20221010, end: 20221220
  6. TEDUGLUTIDE [Suspect]
     Active Substance: TEDUGLUTIDE
     Dosage: 0.28 MILLILITER, QD
     Route: 058
     Dates: start: 20221010, end: 20221220
  7. TEDUGLUTIDE [Suspect]
     Active Substance: TEDUGLUTIDE
     Dosage: 0.28 MILLILITER, QD
     Route: 058
     Dates: start: 20221010, end: 20221220
  8. TEDUGLUTIDE [Suspect]
     Active Substance: TEDUGLUTIDE
     Dosage: 0.28 MILLILITER, QD
     Route: 058
     Dates: start: 20221010, end: 20221220
  9. TEDUGLUTIDE [Suspect]
     Active Substance: TEDUGLUTIDE
     Dosage: UNK
     Route: 058
     Dates: start: 202210
  10. TEDUGLUTIDE [Suspect]
     Active Substance: TEDUGLUTIDE
     Dosage: UNK
     Route: 058
     Dates: start: 202210
  11. TEDUGLUTIDE [Suspect]
     Active Substance: TEDUGLUTIDE
     Dosage: UNK
     Route: 058
     Dates: start: 202210
  12. TEDUGLUTIDE [Suspect]
     Active Substance: TEDUGLUTIDE
     Dosage: UNK
     Route: 058
     Dates: start: 202210
  13. TEDUGLUTIDE [Suspect]
     Active Substance: TEDUGLUTIDE
     Dosage: UNK
     Route: 065
     Dates: start: 20230110
  14. TEDUGLUTIDE [Suspect]
     Active Substance: TEDUGLUTIDE
     Dosage: UNK
     Route: 065
     Dates: start: 20230110
  15. TEDUGLUTIDE [Suspect]
     Active Substance: TEDUGLUTIDE
     Dosage: UNK
     Route: 065
     Dates: start: 20230110
  16. TEDUGLUTIDE [Suspect]
     Active Substance: TEDUGLUTIDE
     Dosage: UNK
     Route: 065
     Dates: start: 20230110
  17. TEDUGLUTIDE [Suspect]
     Active Substance: TEDUGLUTIDE
     Dosage: 0.21 MILLIGRAM, QD
     Route: 065
     Dates: start: 20230207
  18. TEDUGLUTIDE [Suspect]
     Active Substance: TEDUGLUTIDE
     Dosage: 0.21 MILLIGRAM, QD
     Route: 065
     Dates: start: 20230207
  19. TEDUGLUTIDE [Suspect]
     Active Substance: TEDUGLUTIDE
     Dosage: 0.21 MILLIGRAM, QD
     Route: 065
     Dates: start: 20230207
  20. TEDUGLUTIDE [Suspect]
     Active Substance: TEDUGLUTIDE
     Dosage: 0.21 MILLIGRAM, QD
     Route: 065
     Dates: start: 20230207
  21. TEDUGLUTIDE [Suspect]
     Active Substance: TEDUGLUTIDE
     Dosage: 0.21 MILLILITER, QD
     Route: 058
     Dates: start: 20230702
  22. TEDUGLUTIDE [Suspect]
     Active Substance: TEDUGLUTIDE
     Dosage: 0.21 MILLILITER, QD
     Route: 058
     Dates: start: 20230702
  23. TEDUGLUTIDE [Suspect]
     Active Substance: TEDUGLUTIDE
     Dosage: 0.21 MILLILITER, QD
     Route: 058
     Dates: start: 20230702
  24. TEDUGLUTIDE [Suspect]
     Active Substance: TEDUGLUTIDE
     Dosage: 0.21 MILLILITER, QD
     Route: 058
     Dates: start: 20230702
  25. TEDUGLUTIDE [Suspect]
     Active Substance: TEDUGLUTIDE
     Dosage: 0.14 MILLILITER, QD
     Route: 058
     Dates: start: 20230921
  26. TEDUGLUTIDE [Suspect]
     Active Substance: TEDUGLUTIDE
     Dosage: 0.14 MILLILITER, QD
     Route: 058
     Dates: start: 20230921
  27. TEDUGLUTIDE [Suspect]
     Active Substance: TEDUGLUTIDE
     Dosage: 0.14 MILLILITER, QD
     Route: 058
     Dates: start: 20230921
  28. TEDUGLUTIDE [Suspect]
     Active Substance: TEDUGLUTIDE
     Dosage: 0.14 MILLILITER, QD
     Route: 058
     Dates: start: 20230921
  29. TEDUGLUTIDE [Suspect]
     Active Substance: TEDUGLUTIDE
     Dosage: 0.21 MILLILITER, QD
     Route: 058
     Dates: end: 20230228
  30. TEDUGLUTIDE [Suspect]
     Active Substance: TEDUGLUTIDE
     Dosage: 0.21 MILLILITER, QD
     Route: 058
     Dates: end: 20230228
  31. TEDUGLUTIDE [Suspect]
     Active Substance: TEDUGLUTIDE
     Dosage: 0.21 MILLILITER, QD
     Route: 058
     Dates: end: 20230228
  32. TEDUGLUTIDE [Suspect]
     Active Substance: TEDUGLUTIDE
     Dosage: 0.21 MILLILITER, QD
     Route: 058
     Dates: end: 20230228
  33. TEDUGLUTIDE [Suspect]
     Active Substance: TEDUGLUTIDE
     Dosage: 0.28 MILLILITER, QD
     Route: 058
  34. TEDUGLUTIDE [Suspect]
     Active Substance: TEDUGLUTIDE
     Dosage: 0.28 MILLILITER, QD
     Route: 058
  35. TEDUGLUTIDE [Suspect]
     Active Substance: TEDUGLUTIDE
     Dosage: 0.28 MILLILITER, QD
     Route: 058
  36. TEDUGLUTIDE [Suspect]
     Active Substance: TEDUGLUTIDE
     Dosage: 0.28 MILLILITER, QD
     Route: 058
  37. TEDUGLUTIDE [Suspect]
     Active Substance: TEDUGLUTIDE
     Dosage: 0.14 MILLILITER, QD
     Route: 058
  38. TEDUGLUTIDE [Suspect]
     Active Substance: TEDUGLUTIDE
     Dosage: 0.14 MILLILITER, QD
     Route: 058
  39. TEDUGLUTIDE [Suspect]
     Active Substance: TEDUGLUTIDE
     Dosage: 0.14 MILLILITER, QD
     Route: 058
  40. TEDUGLUTIDE [Suspect]
     Active Substance: TEDUGLUTIDE
     Dosage: 0.14 MILLILITER, QD
     Route: 058
  41. MORPHINE [Suspect]
     Active Substance: MORPHINE
     Indication: Product used for unknown indication
     Dosage: UNK
     Route: 065
  42. PALEXIA [Suspect]
     Active Substance: TAPENTADOL HYDROCHLORIDE
     Indication: Product used for unknown indication
     Dosage: UNK
     Route: 065

REACTIONS (22)
  - Constipation [Not Recovered/Not Resolved]
  - Joint swelling [Not Recovered/Not Resolved]
  - Peripheral swelling [Recovering/Resolving]
  - Fluid imbalance [Recovering/Resolving]
  - Nausea [Recovering/Resolving]
  - Vomiting [Recovering/Resolving]
  - Abdominal pain [Recovering/Resolving]
  - Infection [Recovering/Resolving]
  - Device breakage [Unknown]
  - Pain [Unknown]
  - Intestinal pseudo-obstruction [Unknown]
  - Dehydration [Recovering/Resolving]
  - Weight decreased [Recovering/Resolving]
  - Nephrolithiasis [Recovering/Resolving]
  - Intestinal obstruction [Recovered/Resolved with Sequelae]
  - Brain fog [Not Recovered/Not Resolved]
  - Discomfort [Recovered/Resolved]
  - Illness [Recovered/Resolved]
  - Dizziness [Recovered/Resolved]
  - Frequent bowel movements [Not Recovered/Not Resolved]
  - Diarrhoea [Unknown]
  - Product availability issue [Not Recovered/Not Resolved]

NARRATIVE: CASE EVENT DATE: 20221010
